FAERS Safety Report 11742846 (Version 3)
Quarter: 2017Q1

REPORT INFORMATION
  Report Type: Spontaneous
  Country: US (occurrence: US)
  Receive Date: 20151116
  Receipt Date: 20170109
  Transmission Date: 20170428
  Serious: Yes (Other)
  Sender: FDA-Public Use
  Company Number: US-BAYER-2015-464914

PATIENT
  Age: 32 Year
  Sex: Female
  Weight: 91.61 kg

DRUGS (2)
  1. MIRENA [Suspect]
     Active Substance: LEVONORGESTREL
     Indication: CONTRACEPTION
     Dosage: 20 MCG/24HR, CONT
     Route: 015
     Dates: start: 20150813, end: 20150824
  2. MIRENA [Suspect]
     Active Substance: LEVONORGESTREL

REACTIONS (3)
  - Drug ineffective [None]
  - Pregnancy with contraceptive device [None]
  - Abortion spontaneous [None]

NARRATIVE: CASE EVENT DATE: 20150824
